FAERS Safety Report 15605387 (Version 1)
Quarter: 2018Q4

REPORT INFORMATION
  Report Type: Spontaneous
  Country: CA (occurrence: CA)
  Receive Date: 20181112
  Receipt Date: 20181112
  Transmission Date: 20190205
  Serious: Yes (Other)
  Sender: FDA-Public Use
  Company Number: CA-REGENERON PHARMACEUTICALS, INC.-2018-39975

PATIENT

DRUGS (2)
  1. EYLEA [Suspect]
     Active Substance: AFLIBERCEPT
     Indication: NEOVASCULAR AGE-RELATED MACULAR DEGENERATION
     Dosage: UNK, OD, 19 DOSES PRIOR TO EVENT ONSET
  2. EYLEA [Suspect]
     Active Substance: AFLIBERCEPT
     Dosage: 1 DF, ONCE, OD, LAST DOSE
     Route: 031
     Dates: start: 20180925, end: 20180925

REACTIONS (3)
  - Blindness [Unknown]
  - Endophthalmitis [Unknown]
  - Propionibacterium test positive [Unknown]

NARRATIVE: CASE EVENT DATE: 20181001
